FAERS Safety Report 9557859 (Version 2)
Quarter: 2013Q4

REPORT INFORMATION
  Report Type: Spontaneous
  Country: FR (occurrence: FR)
  Receive Date: 20130926
  Receipt Date: 20131001
  Transmission Date: 20140711
  Serious: Yes (Hospitalization)
  Sender: FDA-Public Use
  Company Number: FR-PFIZER INC-2013270553

PATIENT
  Age: 29 Year
  Sex: Female

DRUGS (5)
  1. INLYTA [Suspect]
     Indication: RENAL CANCER METASTATIC
     Dosage: 5 MG, 2X/DAY
     Route: 048
     Dates: start: 20130425, end: 201308
  2. INLYTA [Suspect]
     Dosage: 7 MG, 2X/DAY
     Dates: start: 201308, end: 20130819
  3. LEVOTHYROX [Concomitant]
     Dosage: 225 UG, 1X/DAY
     Route: 048
  4. TRIATEC [Concomitant]
     Dosage: 2.5 MG, 1X/DAY
     Route: 048
  5. GAVISCON [Concomitant]
     Dosage: UNK
     Route: 048

REACTIONS (3)
  - Pancreatitis acute [Recovered/Resolved]
  - Pneumonia [Recovered/Resolved]
  - Aphthous stomatitis [Unknown]
